FAERS Safety Report 13402369 (Version 2)
Quarter: 2017Q2

REPORT INFORMATION
  Report Type: Report from Study
  Country: US (occurrence: US)
  Receive Date: 20170404
  Receipt Date: 20170601
  Transmission Date: 20170830
  Serious: Yes (Hospitalization)
  Sender: FDA-Public Use
  Company Number: US-PFIZER INC-2017097105

PATIENT
  Age: 14 Year
  Sex: Female
  Weight: 46.5 kg

DRUGS (17)
  1. MERCAPTOPURINE. [Suspect]
     Active Substance: MERCAPTOPURINE
     Indication: ACUTE LYMPHOCYTIC LEUKAEMIA
     Dosage: 50 MG (2 TABLETS ON FRI-SUN, 1.5 TABS ON MON-THURS)
     Route: 048
     Dates: start: 20170116
  2. VANCOMYCIN /00314402/ [Concomitant]
     Active Substance: VANCOMYCIN
  3. CYTARABINE. [Suspect]
     Active Substance: CYTARABINE
     Indication: ACUTE LYMPHOCYTIC LEUKAEMIA
     Dosage: (UNITS: MG/M2) 110 MG
     Route: 042
     Dates: start: 20170116
  4. INCB018424 [Suspect]
     Active Substance: RUXOLITINIB
     Indication: ACUTE LYMPHOCYTIC LEUKAEMIA
     Dosage: 40 MG, BID
     Route: 048
     Dates: start: 20170116
  5. BACTRIM [Concomitant]
     Active Substance: SULFAMETHOXAZOLE\TRIMETHOPRIM
     Dosage: UNK
     Dates: start: 20161210
  6. EMLA [Concomitant]
     Active Substance: LIDOCAINE\PRILOCAINE
  7. ZOFRAN [Concomitant]
     Active Substance: ONDANSETRON HYDROCHLORIDE
  8. CHOLECALCIFEROL [Concomitant]
     Active Substance: CHOLECALCIFEROL
  9. MIRALAX [Concomitant]
     Active Substance: POLYETHYLENE GLYCOL 3350
  10. CYCLOPHOSPHAMIDE. [Suspect]
     Active Substance: CYCLOPHOSPHAMIDE
     Indication: ACUTE LYMPHOCYTIC LEUKAEMIA
     Dosage: 1440 MG
     Route: 042
     Dates: start: 20170116
  11. HEPARIN FLUSH [Concomitant]
     Active Substance: HEPARIN SODIUM
  12. VINCRISTINE SULFATE. [Suspect]
     Active Substance: VINCRISTINE SULFATE
     Indication: ACUTE LYMPHOCYTIC LEUKAEMIA
     Dosage: 2 MG ON 30JAN2017, 06FEB2017, 27FEB2017, 06MAR2017
     Route: 042
     Dates: start: 20170130
  13. METHOTREXATE SODIUM. [Suspect]
     Active Substance: METHOTREXATE SODIUM
     Indication: ACUTE LYMPHOCYTIC LEUKAEMIA
     Dosage: 15 MG ON 16JAN2017, 23JAN2017, 30JAN2017 AND 06FEB2017
     Route: 037
     Dates: start: 20170116
  14. MORPHINE [Concomitant]
     Active Substance: MORPHINE
  15. DOCUSATE SODIUM + SENNA [Concomitant]
     Active Substance: DOCUSATE SODIUM\SENNOSIDE A\SENNOSIDE B
     Dosage: [DOCUSATE SODIUM 50 MG]/[SENNOSIDE A+B 8.6 MG]
  16. PEGASPARGASE [Suspect]
     Active Substance: PEGASPARGASE
     Indication: ACUTE LYMPHOCYTIC LEUKAEMIA
     Dosage: (UNITS: IU/M2) 3675 UNITS
     Route: 042
     Dates: start: 20170130, end: 20170130
  17. BIOTENE /03475601/ [Concomitant]

REACTIONS (3)
  - Pyrexia [Recovered/Resolved]
  - Neutrophil count decreased [Recovered/Resolved]
  - Febrile neutropenia [Not Recovered/Not Resolved]

NARRATIVE: CASE EVENT DATE: 20170128
